FAERS Safety Report 10454497 (Version 1)
Quarter: 2014Q3

REPORT INFORMATION
  Report Type: Spontaneous
  Country: US (occurrence: US)
  Receive Date: 20140915
  Receipt Date: 20140915
  Transmission Date: 20150326
  Serious: No
  Sender: FDA-Public Use
  Company Number: US-BRISTOL-MYERS SQUIBB COMPANY-19831213

PATIENT
  Sex: Female

DRUGS (2)
  1. GLUMETZA [Suspect]
     Active Substance: METFORMIN HYDROCHLORIDE
  2. ONGLYZA [Suspect]
     Active Substance: SAXAGLIPTIN HYDROCHLORIDE

REACTIONS (1)
  - Glycosylated haemoglobin increased [Unknown]
